FAERS Safety Report 7987385-4 (Version None)
Quarter: 2011Q4

REPORT INFORMATION
  Report Type: 
  Country: None (occurrence: None)
  Receive Date: 20111216
  Receipt Date: 20110401
  Transmission Date: 20120403
  Serious: Yes (Hospitalization)
  Sender: FDA-Public Use
  Company Number: US-BRISTOL-MYERS SQUIBB COMPANY-15652407

PATIENT
  Age: 51 Year
  Sex: Female

DRUGS (2)
  1. ABILIFY [Suspect]
     Dosage: INCREASED TO 30MG/DAY
     Route: 048
  2. ANTICONVULSANT [Concomitant]

REACTIONS (1)
  - PARKINSONISM [None]
